FAERS Safety Report 8053240 (Version 3)
Quarter: 2012Q4

REPORT INFORMATION
  Report Type: 
  Country: CN (occurrence: CN)
  Receive Date: 20110725
  Receipt Date: 20120828
  Transmission Date: 20130627
  Serious: Yes (Hospitalization, Other)
  Sender: FDA-Public Use
  Company Number: CN-ASTRAZENECA-2011SE42080

PATIENT
  Age: 73 Year
  Sex: Male
  Weight: 55.8 kg

DRUGS (6)
  1. BETALOC ZOK [Suspect]
     Indication: CORONARY ARTERY DISEASE
     Route: 048
     Dates: start: 2009, end: 20110704
  2. BAYASPIRIN [Concomitant]
  3. LIPID LOWER AGENT [Concomitant]
  4. IMDUR [Concomitant]
  5. SPIRONOLACTONE [Concomitant]
  6. CLOPIDOGREL [Concomitant]

REACTIONS (4)
  - Cardiac arrest [Recovered/Resolved]
  - Sick sinus syndrome [Unknown]
  - Atrioventricular block first degree [Unknown]
  - Syncope [Unknown]
